FAERS Safety Report 25532548 (Version 1)
Quarter: 2025Q3

REPORT INFORMATION
  Report Type: Report from Study
  Country: EU (occurrence: EU)
  Receive Date: 20250709
  Receipt Date: 20250709
  Transmission Date: 20251021
  Serious: Yes (Death, Hospitalization, Other)
  Sender: AUROBINDO
  Company Number: EU-Accord-156388

PATIENT
  Age: 16 Year
  Sex: Male

DRUGS (7)
  1. MYCOPHENOLIC ACID [Suspect]
     Active Substance: MYCOPHENOLIC ACID
     Indication: Bone marrow conditioning regimen
     Route: 065
  2. PREDNISONE [Suspect]
     Active Substance: PREDNISONE
     Indication: Bone marrow conditioning regimen
     Route: 065
  3. CORTICOSTEROID NOS [Suspect]
     Active Substance: CORTICOSTEROID NOS
     Indication: Bone marrow conditioning regimen
     Route: 065
  4. CORTICOSTEROID NOS [Suspect]
     Active Substance: CORTICOSTEROID NOS
     Indication: Chronic myeloid leukaemia
  5. PREDNISONE [Suspect]
     Active Substance: PREDNISONE
     Indication: Chronic myeloid leukaemia
     Route: 065
  6. PREDNISONE [Suspect]
     Active Substance: PREDNISONE
     Indication: Bone marrow conditioning regimen
  7. CYCLOSPORINE [Suspect]
     Active Substance: CYCLOSPORINE
     Indication: Bone marrow conditioning regimen
     Route: 065

REACTIONS (6)
  - Cerebral aspergillosis [Fatal]
  - Bronchopulmonary aspergillosis [Fatal]
  - Aspergillus infection [Fatal]
  - Cytomegalovirus viraemia [Recovering/Resolving]
  - Neutropenia [Not Recovered/Not Resolved]
  - Mucormycosis [Recovered/Resolved]
